FAERS Safety Report 11052285 (Version 1)
Quarter: 2015Q2

REPORT INFORMATION
  Report Type: Report from Study
  Country: DE (occurrence: DE)
  Receive Date: 20150421
  Receipt Date: 20150421
  Transmission Date: 20150821
  Serious: Yes (Hospitalization)
  Sender: FDA-Public Use
  Company Number: DE-TEVA-555278GER

PATIENT
  Age: 6 Decade
  Sex: Female
  Weight: 82 kg

DRUGS (8)
  1. EMEND [Concomitant]
     Active Substance: APREPITANT
     Dosage: 80 MG ON THE SECOND AND THIRD DAY OF A CYCLE
     Route: 048
     Dates: start: 20141210
  2. DEXAMETHASONE. [Concomitant]
     Active Substance: DEXAMETHASONE
     Indication: ANTIEMETIC SUPPORTIVE CARE
     Dosage: 8 MILLIGRAM DAILY;
     Route: 048
     Dates: start: 20141210
  3. EMEND [Concomitant]
     Active Substance: APREPITANT
     Indication: ANTIEMETIC SUPPORTIVE CARE
     Dosage: 125 MG ON THE FIRST DAY OF A CYCLE
     Route: 048
     Dates: start: 20141210
  4. DOXORUBICIN [Suspect]
     Active Substance: DOXORUBICIN
     Indication: BREAST CANCER FEMALE
     Dosage: LAST DOSE PRIOR AE: 04-MAR-2015
     Route: 042
     Dates: start: 20141210, end: 20150413
  5. DOCETAXEL. [Concomitant]
     Active Substance: DOCETAXEL
     Indication: BREAST CANCER FEMALE
     Dosage: LAST DOSE PRIOR AE: 04-MAR-2015
     Route: 042
     Dates: start: 20141210
  6. PALONOSETRON [Concomitant]
     Active Substance: PALONOSETRON
     Indication: ANTIEMETIC SUPPORTIVE CARE
     Dosage: 250 MICROGRAM DAILY;
     Route: 042
     Dates: start: 20141210
  7. LONQUEX [Suspect]
     Active Substance: LIPEGFILGRASTIM
     Indication: NEUTROPENIA
     Dosage: LAST DOSE PRIOR AE: 12-FEB-2015
     Dates: start: 20141212, end: 20150326
  8. CYCLOPHOSPHAMIDE. [Concomitant]
     Active Substance: CYCLOPHOSPHAMIDE
     Indication: BREAST CANCER FEMALE
     Dosage: LAST DOSE PRIOR AE: 04-MAR-2015
     Route: 042
     Dates: start: 20141210

REACTIONS (1)
  - Febrile neutropenia [Recovered/Resolved]

NARRATIVE: CASE EVENT DATE: 20150310
